FAERS Safety Report 9525341 (Version 1)
Quarter: 2013Q1

REPORT INFORMATION
  Report Type: Spontaneous
  Country: US (occurrence: None)
  Receive Date: 20130314
  Receipt Date: 20130314
  Transmission Date: 20140127
  Serious: No
  Sender: FDA-Public Use
  Company Number: 1212USA004128

PATIENT
  Age: 62 Year
  Sex: Female

DRUGS (4)
  1. VICTRELIS (BOCEPREVIR) CAPSULE [Suspect]
     Indication: HEPATITIS C
     Route: 048
     Dates: start: 201206, end: 20121207
  2. PEGASYS (PEGINTERFERON ALFA-2A) [Suspect]
     Indication: HEPATITIS C
     Dates: end: 20121207
  3. RIBASPHERE (RIBAVIRIN) [Suspect]
     Indication: HEPATITIS C
     Dates: end: 20121207
  4. PROCRIT (EPOETIN ALFA) [Concomitant]

REACTIONS (1)
  - Decreased appetite [None]
